FAERS Safety Report 9869215 (Version 1)
Quarter: 2014Q1

REPORT INFORMATION
  Report Type: Spontaneous
  Country: US (occurrence: US)
  Receive Date: 20140205
  Receipt Date: 20140205
  Transmission Date: 20141002
  Serious: Yes (Hospitalization)
  Sender: FDA-Public Use
  Company Number: US-JNJFOC-20140115229

PATIENT
  Age: 58 Year
  Sex: Female

DRUGS (2)
  1. CHILDREN^S TYLENOL CHERRY BLAST [Suspect]
     Route: 048
  2. CHILDREN^S TYLENOL [Suspect]
     Indication: PRODUCT USED FOR UNKNOWN INDICATION
     Dosage: DOSAGES: 1 TEASPOON, ONCE EVERY 3 HOURS
     Route: 048
     Dates: start: 20140113

REACTIONS (2)
  - Convulsion [Unknown]
  - Off label use [Unknown]
